FAERS Safety Report 9636353 (Version 2)
Quarter: 2013Q4

REPORT INFORMATION
  Report Type: Spontaneous
  Country: DK (occurrence: AU)
  Receive Date: 20131021
  Receipt Date: 20131113
  Transmission Date: 20140711
  Serious: Yes (Life-Threatening, Hospitalization)
  Sender: FDA-Public Use
  Company Number: AU-FRI-1000050319

PATIENT
  Age: 42 Year
  Sex: Female

DRUGS (7)
  1. LEXAPRO [Suspect]
     Indication: DEPRESSION
     Dosage: 30 MG
     Route: 048
  2. ALPRAZOLAM [Interacting]
     Indication: DEPRESSION
     Dosage: 1 MG
     Route: 048
  3. METHYLPREDNISOLONE [Interacting]
     Indication: PRODUCT USED FOR UNKNOWN INDICATION
     Dosage: 40 MG
     Route: 050
  4. SODIUM VALPROATE [Interacting]
     Indication: AFFECTIVE DISORDER
     Dosage: 1.5 GRAM
     Route: 048
  5. MIRTAZAPINE [Concomitant]
     Indication: DEPRESSION
     Dosage: 75 MG
     Route: 048
  6. RABEPRAZOLE [Concomitant]
     Dosage: 20 MG
     Route: 048
  7. SALBUTAMOL [Concomitant]
     Indication: ASTHMA
     Dosage: 6 DF

REACTIONS (3)
  - Depressed level of consciousness [Recovered/Resolved]
  - Overdose [Recovered/Resolved]
  - Drug interaction [Recovered/Resolved]
